FAERS Safety Report 8910114 (Version 1)
Quarter: 2012Q4

REPORT INFORMATION
  Report Type: 
  Country: DE (occurrence: DE)
  Receive Date: 20121115
  Receipt Date: 20121115
  Transmission Date: 20130627
  Serious: Yes (Other)
  Sender: FDA-Public Use
  Company Number: DE-BRISTOL-MYERS SQUIBB COMPANY-17112475

PATIENT
  Age: 22 Year
  Sex: Male

DRUGS (3)
  1. ABILIFY [Suspect]
     Dosage: 25May12-5Jun12(5mg); 06Jun12-8Jun12(10mg).
     Route: 048
     Dates: start: 20120525, end: 20120608
  2. RISPERDAL [Suspect]
     Route: 048
     Dates: start: 20120524
  3. TAVOR [Concomitant]
     Dosage: 22May12-08Jun12(3mg);09Jun12(4 mg).
     Route: 048
     Dates: start: 20120522

REACTIONS (2)
  - Delusion [Unknown]
  - Hallucination [Unknown]
